FAERS Safety Report 6230815-9 (Version None)
Quarter: 2009Q2

REPORT INFORMATION
  Report Type: 
  Country: None (occurrence: None)
  Receive Date: 20090611
  Receipt Date: 20090601
  Transmission Date: 20091009
  Serious: Yes (Hospitalization)
  Sender: FDA-Public Use
  Company Number: 2009-197774-NL

PATIENT
  Age: 41 Year
  Sex: Female

DRUGS (2)
  1. DESOGESTREL AND ETHINYL ESTRADIOL [Suspect]
     Indication: CONTRACEPTION
     Dosage: 1 DF
     Route: 048
     Dates: end: 20090101
  2. ACETYLSALICYLIC ACID [Concomitant]

REACTIONS (1)
  - COLITIS ISCHAEMIC [None]
